FAERS Safety Report 6390574-6 (Version None)
Quarter: 2009Q4

REPORT INFORMATION
  Report Type: 
  Country: None (occurrence: None)
  Receive Date: 20091005
  Receipt Date: 20091005
  Transmission Date: 20100525
  Serious: Yes (Disabling)
  Sender: FDA-Public Use
  Company Number: None

PATIENT
  Age: 88 Year
  Sex: Female

DRUGS (9)
  1. PROSTANDIN /00501501/ (PROSTANDIN 20) [Suspect]
     Indication: ARTERIAL OCCLUSIVE DISEASE
     Dosage: 60 UG
     Dates: start: 20090609, end: 20090616
  2. ANPLAG (ANPLAG) [Suspect]
     Indication: ARTERIAL OCCLUSIVE DISEASE
     Dosage: 150 MG ORAL
     Route: 048
     Dates: start: 20090609
  3. LASIX [Concomitant]
  4. NU-LOTAN [Concomitant]
  5. ARTIST [Concomitant]
  6. ASPIRIN [Concomitant]
  7. WARFARIN SODIUM [Concomitant]
  8. MEVALOTIN [Concomitant]
  9. ANPLAG [Concomitant]

REACTIONS (4)
  - CARDIAC FAILURE CONGESTIVE [None]
  - CONDITION AGGRAVATED [None]
  - RENAL FAILURE ACUTE [None]
  - TOE AMPUTATION [None]
